FAERS Safety Report 4909381-3 (Version None)
Quarter: 2006Q1

REPORT INFORMATION
  Report Type: 
  Country: None (occurrence: None)
  Receive Date: 20060213
  Receipt Date: 20060201
  Transmission Date: 20060701
  Serious: Yes (Death, Life-Threatening, Hospitalization)
  Sender: FDA-Public Use
  Company Number: FR-JNJFOC-20060202167

PATIENT
  Age: 67 Year
  Sex: Male

DRUGS (2)
  1. CONTRAMAL [Suspect]
     Indication: PAIN
     Route: 048
  2. PRIMPERAN INJ [Concomitant]
     Indication: GASTROINTESTINAL DISORDER
     Route: 065

REACTIONS (2)
  - HYPOVOLAEMIC SHOCK [None]
  - INTESTINAL ISCHAEMIA [None]
